FAERS Safety Report 5631736-2 (Version None)
Quarter: 2008Q1

REPORT INFORMATION
  Report Type: 
  Country: None (occurrence: None)
  Receive Date: 20080220
  Receipt Date: 20080215
  Transmission Date: 20080703
  Serious: Yes (Hospitalization)
  Sender: FDA-Public Use
  Company Number: GB-BRISTOL-MYERS SQUIBB COMPANY-14053995

PATIENT
  Sex: Male

DRUGS (1)
  1. COAPROVEL [Suspect]

REACTIONS (2)
  - CARDIAC DISORDER [None]
  - DYSPHAGIA [None]
